FAERS Safety Report 5308087-9 (Version None)
Quarter: 2007Q2

REPORT INFORMATION
  Report Type: 
  Country: None (occurrence: None)
  Receive Date: 20070426
  Receipt Date: 20070416
  Transmission Date: 20071010
  Serious: Yes (Other)
  Sender: FDA-Public Use
  Company Number: PHEH2007US05351

PATIENT
  Age: 64 Year
  Sex: Female
  Weight: 58.956 kg

DRUGS (6)
  1. ESTRADERM [Suspect]
     Indication: CARDIOVASCULAR EVENT PROPHYLAXIS
     Dosage: 0.05 MG, UNK
     Route: 062
     Dates: start: 19971127, end: 19980101
  2. VERAPAMIL [Concomitant]
     Indication: ATRIAL FIBRILLATION
     Dosage: 240 MG, QD
     Route: 048
  3. LANOXIN [Concomitant]
     Indication: ATRIAL FIBRILLATION
     Dosage: 0.25 MG, UNK
     Route: 048
  4. ASPIRIN [Concomitant]
     Dosage: UNK, QD
     Route: 048
  5. PREMPRO [Suspect]
     Indication: CARDIOVASCULAR EVENT PROPHYLAXIS
     Route: 048
     Dates: start: 19970101, end: 19980101
  6. PREMPRO [Suspect]
     Dosage: .625/2.5 MG
     Route: 048
     Dates: start: 19980416, end: 20010709

REACTIONS (14)
  - AORTIC STENOSIS [None]
  - BASAL CELL CARCINOMA [None]
  - BENIGN BREAST NEOPLASM [None]
  - BREAST CANCER [None]
  - BREAST MASS [None]
  - EMOTIONAL DISORDER [None]
  - LYMPHADENECTOMY [None]
  - MAMMOGRAM ABNORMAL [None]
  - OSTEOPENIA [None]
  - OVARIAN CYST [None]
  - PELVIC PAIN [None]
  - RADIOTHERAPY [None]
  - SKIN NEOPLASM EXCISION [None]
  - UTERINE POLYP [None]
